FAERS Safety Report 7807348-9 (Version None)
Quarter: 2011Q4

REPORT INFORMATION
  Report Type: 
  Country: None (occurrence: None)
  Receive Date: 20111011
  Receipt Date: 20111005
  Transmission Date: 20120403
  Serious: Yes (Life-Threatening, Hospitalization, Other)
  Sender: FDA-Public Use
  Company Number: FR-PFIZER INC-2011237596

PATIENT
  Age: 58 Year
  Sex: Female

DRUGS (10)
  1. CLONAZEPAM [Suspect]
     Dosage: 2.5MG/ML (1 BOTTLE)
     Route: 002
  2. PRAZEPAM [Suspect]
     Dosage: 10 MG, 3X/DAY
  3. ACETAMINOPHEN AND TRAMADOL HCL [Suspect]
     Dosage: 67 DF, SINGLE (37.5 MG/325 MG)
     Route: 002
  4. CLONAZEPAM [Suspect]
     Dosage: 20 GTT, 1X/DAY
  5. ZOPICLONE [Concomitant]
     Dosage: 1 DF, 1X/DAY
  6. LYRICA [Suspect]
     Dosage: 41 DF, SINGLE
     Route: 002
  7. PRAZEPAM [Suspect]
     Dosage: 11 DF, SINGLE
     Route: 002
  8. CYMBALTA [Concomitant]
     Dosage: 60 MG, 1X/DAY
  9. ATARAX [Concomitant]
     Dosage: 25 MG, 1X/DAY
  10. LYRICA [Suspect]
     Dosage: 200 MG, 2X/DAY

REACTIONS (6)
  - LOSS OF CONSCIOUSNESS [None]
  - HYPOTHERMIA [None]
  - POISONING DELIBERATE [None]
  - RESPIRATORY ACIDOSIS [None]
  - LIVER FUNCTION TEST ABNORMAL [None]
  - SUICIDE ATTEMPT [None]
